FAERS Safety Report 15852543 (Version 2)
Quarter: 2019Q4

REPORT INFORMATION
  Report Type: Spontaneous
  Country: US (occurrence: US)
  Receive Date: 20190122
  Receipt Date: 20191201
  Transmission Date: 20200122
  Serious: Yes (Hospitalization)
  Sender: FDA-Public Use
  Company Number: US-SAKK-2019SA015291AA

PATIENT
  Age: 78 Year
  Sex: Female

DRUGS (1)
  1. KEVZARA [Suspect]
     Active Substance: SARILUMAB
     Indication: RHEUMATOID ARTHRITIS
     Dosage: 200 MG, QM
     Route: 058
     Dates: start: 20181119

REACTIONS (3)
  - Fall [Unknown]
  - Product use issue [Unknown]
  - Injection site rash [Unknown]

NARRATIVE: CASE EVENT DATE: 20181119
